FAERS Safety Report 4607717-4 (Version None)
Quarter: 2005Q1

REPORT INFORMATION
  Report Type: 
  Country: None (occurrence: None)
  Receive Date: 20050310
  Receipt Date: 20050302
  Transmission Date: 20050727
  Serious: Yes (Death, Hospitalization, Other)
  Sender: FDA-Public Use
  Company Number: 05-133

PATIENT
  Age: 49 Year
  Sex: Female

DRUGS (3)
  1. ISOPTIN [Suspect]
     Indication: ESSENTIAL HYPERTENSION
     Dosage: 240 MG, ORAL
     Route: 048
  2. TAMOXIFEN CITRATE [Suspect]
     Indication: BREAST NEOPLASM
     Dosage: 20 MG, ORAL
     Route: 048
     Dates: start: 20011001, end: 20050128
  3. ATORVASTATIN CALCIUM [Suspect]
     Dosage: 10.0 MG, 1 IN 1 D

REACTIONS (7)
  - ACUTE MYELOID LEUKAEMIA [None]
  - ALANINE AMINOTRANSFERASE INCREASED [None]
  - ASPARTATE AMINOTRANSFERASE INCREASED [None]
  - DISSEMINATED INTRAVASCULAR COAGULATION [None]
  - LIVER DISORDER [None]
  - PANCYTOPENIA [None]
  - THROMBOSIS [None]
